FAERS Safety Report 9263924 (Version 1)
Quarter: 2013Q2

REPORT INFORMATION
  Report Type: Other
  Country: IT (occurrence: IT)
  Receive Date: 20130430
  Receipt Date: 20130430
  Transmission Date: 20140414
  Serious: Yes (Hospitalization)
  Sender: FDA-Public Use
  Company Number: IT-ACTAVIS-2013-07239

PATIENT
  Age: 34 Year
  Sex: Male

DRUGS (3)
  1. ALPRAZOLAM (UNKNOWN) [Suspect]
     Indication: PRODUCT USED FOR UNKNOWN INDICATION
     Dosage: DAILY DOSE UNKNOWN - OVERDOSE WITH 20ML TOTAL
     Route: 048
     Dates: start: 20130408, end: 20130408
  2. LORMETAZEPAM [Suspect]
     Indication: PRODUCT USED FOR UNKNOWN INDICATION
     Dosage: DAILY DOSE UNKNOWN - OVERDOSE WITH 20ML TOTAL
     Route: 048
     Dates: start: 20130408, end: 20130408
  3. ETHANOL [Suspect]
     Indication: PRODUCT USED FOR UNKNOWN INDICATION
     Route: 065

REACTIONS (6)
  - Bradykinesia [Recovered/Resolved]
  - Bradyphrenia [Recovered/Resolved]
  - Sopor [Recovered/Resolved]
  - Intentional self-injury [Recovered/Resolved]
  - Intentional drug misuse [Recovered/Resolved]
  - Overdose [Unknown]
